FAERS Safety Report 7583538-8 (Version None)
Quarter: 2011Q2

REPORT INFORMATION
  Report Type: 
  Country: None (occurrence: None)
  Receive Date: 20110630
  Receipt Date: 20110620
  Transmission Date: 20111010
  Serious: Yes (Hospitalization)
  Sender: FDA-Public Use
  Company Number: US-EISAI INC-E7389-01226-CLI-US

PATIENT
  Sex: Female

DRUGS (5)
  1. TARCEVA [Suspect]
     Route: 048
     Dates: start: 20101102, end: 20101116
  2. TARCEVA [Suspect]
     Route: 048
     Dates: start: 20101129, end: 20110317
  3. EPIRUBICIN HYDROCHLORIDE [Suspect]
     Route: 041
     Dates: start: 20101220, end: 20110323
  4. EPIRUBICIN HYDROCHLORIDE [Suspect]
     Route: 041
     Dates: start: 20101129, end: 20101220
  5. EPIRUBICIN HYDROCHLORIDE [Suspect]
     Route: 041
     Dates: start: 20101101, end: 20101129

REACTIONS (2)
  - FLANK PAIN [None]
  - DEHYDRATION [None]
